FAERS Safety Report 19995166 (Version 1)
Quarter: 2021Q4

REPORT INFORMATION
  Report Type: Spontaneous
  Country: CO (occurrence: CO)
  Receive Date: 20211026
  Receipt Date: 20211026
  Transmission Date: 20220303
  Serious: Yes (unspecified)
  Sender: FDA-Public Use
  Company Number: None

PATIENT
  Age: 30 Year
  Sex: Male
  Weight: 91 kg

DRUGS (1)
  1. LEVOCETIRIZINE DIHYDROCHLORIDE\MONTELUKAST SODIUM [Suspect]
     Active Substance: LEVOCETIRIZINE DIHYDROCHLORIDE\MONTELUKAST SODIUM
     Indication: Rhinitis allergic
     Dosage: ?          QUANTITY:1 TABLET(S);
     Route: 048
     Dates: start: 20200731

REACTIONS (2)
  - Sleep sex [None]
  - Depression [None]

NARRATIVE: CASE EVENT DATE: 20211025
